FAERS Safety Report 8954056 (Version 1)
Quarter: 2012Q4

REPORT INFORMATION
  Report Type: 
  Country: US (occurrence: US)
  Receive Date: 20121207
  Receipt Date: 20121207
  Transmission Date: 20130627
  Serious: No
  Sender: FDA-Public Use
  Company Number: US-009507513-1212USA001514

PATIENT
  Sex: Male

DRUGS (4)
  1. VICTRELIS [Suspect]
     Indication: HEPATITIS C
     Dosage: 4 DF, q8h as directed; start at week 5
     Route: 048
  2. RIBAVIRIN [Suspect]
     Dosage: 200 mg tablet
  3. PEGASYS [Suspect]
     Dosage: 180 MCG/M
  4. PROCRIT [Concomitant]
     Dosage: 40000/ML

REACTIONS (1)
  - Headache [Unknown]
